FAERS Safety Report 8815815 (Version 2)
Quarter: 2013Q4

REPORT INFORMATION
  Report Type: Spontaneous
  Country: US (occurrence: US)
  Receive Date: 20120928
  Receipt Date: 20131121
  Transmission Date: 20140711
  Serious: Yes (Hospitalization, Other)
  Sender: FDA-Public Use
  Company Number: US-B.I. PHARMACEUTICALS,INC./RIDGEFIELD-2012-EU-04637GD

PATIENT
  Age: 73 Year
  Sex: Female

DRUGS (5)
  1. PRADAXA [Suspect]
     Indication: ATRIAL FIBRILLATION
     Dosage: 150 MG
     Route: 048
  2. PRADAXA [Suspect]
     Indication: ANTIPHOSPHOLIPID SYNDROME
  3. ASPIRIN [Suspect]
     Indication: ATRIAL FIBRILLATION
     Dosage: 81 MG
  4. ASPIRIN [Suspect]
     Indication: ANTIPHOSPHOLIPID SYNDROME
  5. HEPARIN [Suspect]

REACTIONS (7)
  - Cardiac tamponade [Unknown]
  - Pericardial haemorrhage [Unknown]
  - Pericardial effusion [Unknown]
  - Acute myocardial infarction [Unknown]
  - Asthenia [Unknown]
  - Hyperhidrosis [Unknown]
  - Hypotension [Unknown]
